FAERS Safety Report 6268388-7 (Version None)
Quarter: 2009Q3

REPORT INFORMATION
  Report Type: 
  Country: None (occurrence: None)
  Receive Date: 20090713
  Receipt Date: 20090713
  Transmission Date: 20100115
  Serious: No
  Sender: FDA-Public Use
  Company Number: None

PATIENT
  Age: 70 Year
  Sex: Male
  Weight: 89.8122 kg

DRUGS (1)
  1. BENAZEPRIL HYDROCHLORIDE AND HYDROCHLOROTHIAZIDE [Suspect]

REACTIONS (4)
  - ERECTILE DYSFUNCTION [None]
  - FAECAL INCONTINENCE [None]
  - PRODUCTIVE COUGH [None]
  - URINARY INCONTINENCE [None]
